FAERS Safety Report 9367161 (Version 1)
Quarter: 2013Q2

REPORT INFORMATION
  Report Type: Spontaneous
  Country: US (occurrence: US)
  Receive Date: 20130625
  Receipt Date: 20130625
  Transmission Date: 20140414
  Serious: No
  Sender: FDA-Public Use
  Company Number: US-ASTELLAS-2012US005864

PATIENT
  Sex: Female
  Weight: 59 kg

DRUGS (7)
  1. VESICARE [Suspect]
     Indication: KIDNEY INFECTION
     Dosage: 5 MG, UID/QD
     Route: 048
     Dates: start: 2008
  2. VESICARE [Suspect]
     Indication: DIURETIC THERAPY
  3. RAMIDEX [Concomitant]
     Indication: NEOPLASM MALIGNANT
     Dosage: 1 MG, UID/QD
     Route: 048
     Dates: start: 2008
  4. ATENOLOL [Concomitant]
     Indication: BLOOD PRESSURE
     Dosage: 25 MG, BID
     Route: 048
     Dates: start: 2008
  5. FUROSEMIDE [Concomitant]
     Indication: PRODUCT USED FOR UNKNOWN INDICATION
     Dosage: 20 MG, UID/QD
     Route: 048
     Dates: start: 2008
  6. PRAVASTATIN SODIUM [Concomitant]
     Indication: PRODUCT USED FOR UNKNOWN INDICATION
     Dosage: 40 MG, UID/QD
     Route: 048
     Dates: start: 2008
  7. AMLODIPINE [Concomitant]
     Indication: PRODUCT USED FOR UNKNOWN INDICATION
     Dosage: 2.5 MG, UID/QD
     Route: 048
     Dates: start: 2008

REACTIONS (1)
  - Off label use [Unknown]
